FAERS Safety Report 10921190 (Version 5)
Quarter: 2015Q2

REPORT INFORMATION
  Report Type: Report from Study
  Country: PL (occurrence: PL)
  Receive Date: 20150317
  Receipt Date: 20150509
  Transmission Date: 20150821
  Serious: Yes (Hospitalization)
  Sender: FDA-Public Use
  Company Number: PL-ROCHE-1550951

PATIENT
  Age: 66 Year
  Sex: Male

DRUGS (11)
  1. TIMONACICUM [Concomitant]
     Indication: HEPATIC ENZYME INCREASED
     Route: 048
     Dates: start: 20140401
  2. TOCILIZUMAB [Suspect]
     Active Substance: TOCILIZUMAB
     Indication: RHEUMATOID ARTHRITIS
     Dosage: DATE OF THE MOST RECENT DOSE OF TOCILIZUMAB PRIOR TO SAE: 26/FEB/2015
     Route: 042
  3. FOLIC ACID. [Concomitant]
     Active Substance: FOLIC ACID
     Route: 048
     Dates: start: 201201
  4. OMEPRAZOL [Concomitant]
     Active Substance: OMEPRAZOLE
     Route: 048
     Dates: start: 20121010
  5. METHOTREXATE [Concomitant]
     Active Substance: METHOTREXATE
     Indication: RHEUMATOID ARTHRITIS
     Route: 048
     Dates: start: 201201
  6. ROSUVASTATINUM [Concomitant]
     Indication: HYPERLIPIDAEMIA
     Route: 048
     Dates: start: 200303
  7. BISOPROLOLI FUMARAS [Concomitant]
     Indication: ANGINA PECTORIS
     Route: 048
     Dates: start: 2002
  8. METHYLPREDNISOLONE. [Concomitant]
     Active Substance: METHYLPREDNISOLONE
     Indication: RHEUMATOID ARTHRITIS
     Route: 048
     Dates: start: 20080730
  9. COLECALCIFEROLUM [Concomitant]
     Indication: OSTEOPOROSIS
     Route: 048
     Dates: start: 2009
  10. AUGMENTIN [Concomitant]
     Active Substance: AMOXICILLIN\CLAVULANATE POTASSIUM
     Indication: PHARYNGITIS
     Route: 048
     Dates: start: 20140518, end: 20140601
  11. MELOXICAM. [Concomitant]
     Active Substance: MELOXICAM
     Indication: RHEUMATOID ARTHRITIS
     Route: 048
     Dates: start: 20121121

REACTIONS (1)
  - Brain neoplasm [Recovered/Resolved]

NARRATIVE: CASE EVENT DATE: 20150306
